FAERS Safety Report 24144957 (Version 1)
Quarter: 2024Q3

REPORT INFORMATION
  Report Type: Spontaneous
  Country: US (occurrence: US)
  Receive Date: 20240729
  Receipt Date: 20240729
  Transmission Date: 20241017
  Serious: No
  Sender: ENDO
  Company Number: ENDG24-00729

PATIENT
  Sex: Female

DRUGS (1)
  1. LABETALOL HYDROCHLORIDE [Suspect]
     Active Substance: LABETALOL\LABETALOL HYDROCHLORIDE
     Indication: Blood pressure abnormal
     Dosage: 100 MILLIGRAM, UNKNOWN
     Route: 065

REACTIONS (4)
  - Pain in extremity [Unknown]
  - Tachycardia [Unknown]
  - Headache [Unknown]
  - Suspected product tampering [Unknown]
